FAERS Safety Report 6569772-4 (Version None)
Quarter: 2010Q1

REPORT INFORMATION
  Report Type: 
  Country: None (occurrence: None)
  Receive Date: 20100202
  Receipt Date: 20100202
  Transmission Date: 20100710
  Serious: Yes (Hospitalization)
  Sender: FDA-Public Use
  Company Number: None

PATIENT
  Sex: Male
  Weight: 79.55 kg

DRUGS (5)
  1. HUMIRA [Suspect]
     Dosage: 40 MG EVERY 14 DAYS SC
     Route: 058
  2. TRAMADOL [Concomitant]
  3. HYDROCODONE [Concomitant]
  4. AMBIEN [Concomitant]
  5. ATENOLOL [Concomitant]

REACTIONS (4)
  - CHEST DISCOMFORT [None]
  - NAUSEA [None]
  - SENSORY DISTURBANCE [None]
  - VOMITING [None]
